FAERS Safety Report 10246115 (Version 1)
Quarter: 2014Q2

REPORT INFORMATION
  Report Type: Report from Study
  Country: CA (occurrence: CA)
  Receive Date: 20140619
  Receipt Date: 20140619
  Transmission Date: 20141212
  Serious: Yes (Hospitalization)
  Sender: FDA-Public Use
  Company Number: CA-JNJFOC-20140609151

PATIENT
  Age: 29 Year
  Sex: Male
  Weight: 56.7 kg

DRUGS (1)
  1. REMICADE [Suspect]
     Indication: CROHN^S DISEASE
     Route: 042
     Dates: start: 20130812, end: 20140404

REACTIONS (2)
  - Abdominal pain [Unknown]
  - Diarrhoea [Unknown]
